FAERS Safety Report 19939089 (Version 2)
Quarter: 2022Q1

REPORT INFORMATION
  Report Type: Report from Study
  Country: ZA (occurrence: ZA)
  Receive Date: 20211011
  Receipt Date: 20220205
  Transmission Date: 20220423
  Serious: Yes (Other)
  Sender: FDA-Public Use
  Company Number: ZA-NOVARTISPH-NVSC2021ZA221739

PATIENT
  Age: 33 Year
  Sex: Female

DRUGS (11)
  1. FINGOLIMOD HYDROCHLORIDE [Suspect]
     Active Substance: FINGOLIMOD HYDROCHLORIDE
     Indication: Multiple sclerosis
     Dosage: 0.5 MG, QD
     Route: 048
     Dates: start: 20181031
  2. LYSINE [Concomitant]
     Active Substance: LYSINE
     Indication: Product used for unknown indication
     Dosage: UNK
     Route: 065
  3. IVY EXTRACT [Concomitant]
     Active Substance: IVY EXTRACT
     Indication: Product used for unknown indication
     Dosage: UNK
     Route: 065
  4. EFFERFLU C [Concomitant]
     Indication: Product used for unknown indication
     Dosage: UNK
     Route: 065
  5. SYNALEVE [Concomitant]
     Indication: Product used for unknown indication
     Dosage: UNK
     Route: 065
  6. STREPSILS [Concomitant]
     Indication: Product used for unknown indication
     Dosage: UNK
     Route: 065
  7. ANDOLEX [Concomitant]
     Indication: Product used for unknown indication
     Dosage: UNK
     Route: 065
  8. BENYLIN WITH CODEINE [Concomitant]
     Active Substance: CODEINE PHOSPHATE\DIPHENHYDRAMINE HYDROCHLORIDE\MENTHOL
     Indication: Product used for unknown indication
     Dosage: UNK
     Route: 065
  9. AMMONIUM CHLORIDE\DIPHENHYDRAMINE\ETOFYLLINE\SODIUM CITRATE\THEOPHYLLI [Concomitant]
     Active Substance: AMMONIUM CHLORIDE\DIPHENHYDRAMINE\ETOFYLLINE\SODIUM CITRATE\THEOPHYLLINE
     Indication: Product used for unknown indication
     Dosage: UNK
     Route: 065
  10. VICKS ACTA PLUS [Concomitant]
     Indication: Product used for unknown indication
     Dosage: UNK
     Route: 065
  11. ZINPLEX [Concomitant]
     Indication: Product used for unknown indication
     Dosage: UNK
     Route: 065

REACTIONS (12)
  - Bronchitis [Recovering/Resolving]
  - Malaise [Unknown]
  - Pyrexia [Unknown]
  - Feeling hot [Unknown]
  - Night sweats [Unknown]
  - Cough [Unknown]
  - Oropharyngeal pain [Recovering/Resolving]
  - Nasal congestion [Unknown]
  - Upper-airway cough syndrome [Unknown]
  - Oral herpes [Unknown]
  - Sinusitis [Recovering/Resolving]
  - Chest pain [Recovering/Resolving]

NARRATIVE: CASE EVENT DATE: 20210924
